FAERS Safety Report 24608946 (Version 3)
Quarter: 2025Q1

REPORT INFORMATION
  Report Type: Spontaneous
  Country: CN (occurrence: CN)
  Receive Date: 20241112
  Receipt Date: 20250214
  Transmission Date: 20250408
  Serious: Yes (Other)
  Sender: NOVARTIS
  Company Number: CN-002147023-NVSC2024CN217235

PATIENT
  Age: 49 Year
  Sex: Female

DRUGS (1)
  1. SECUKINUMAB [Suspect]
     Active Substance: SECUKINUMAB
     Indication: SAPHO syndrome
     Dosage: 300 MG, QW
     Route: 065

REACTIONS (4)
  - Rash pustular [Recovering/Resolving]
  - Onychomadesis [Recovered/Resolved]
  - Condition aggravated [Recovering/Resolving]
  - Drug ineffective for unapproved indication [Unknown]
